FAERS Safety Report 4787353-X (Version None)
Quarter: 2005Q4

REPORT INFORMATION
  Report Type: 
  Country: None (occurrence: None)
  Receive Date: 20051003
  Receipt Date: 20050921
  Transmission Date: 20060501
  Serious: Yes (Death)
  Sender: FDA-Public Use
  Company Number: HQWYE600922SEP05

PATIENT
  Age: 55 Year
  Sex: 0

DRUGS (1)
  1. CORDARONE [Suspect]

REACTIONS (2)
  - MEDICATION ERROR [None]
  - OVERDOSE [None]
